FAERS Safety Report 5983537-3 (Version None)
Quarter: 2008Q4

REPORT INFORMATION
  Report Type: 
  Country: None (occurrence: None)
  Receive Date: 20081208
  Receipt Date: 20081126
  Transmission Date: 20090506
  Serious: Yes (Other)
  Sender: FDA-Public Use
  Company Number: US-ROCHE-597436

PATIENT
  Sex: Female
  Weight: 65.8 kg

DRUGS (2)
  1. CAPECITABINE [Suspect]
     Indication: BREAST CANCER
     Dosage: DOSING AMOUNT REPORTED AS: 1000/M2, TDD: 2000/M2.
     Route: 065
     Dates: start: 20080302, end: 20081001
  2. ZOMETA [Concomitant]

REACTIONS (1)
  - DISEASE PROGRESSION [None]
